FAERS Safety Report 7639679-X (Version None)
Quarter: 2011Q3

REPORT INFORMATION
  Report Type: 
  Country: None (occurrence: None)
  Receive Date: 20110727
  Receipt Date: 20110714
  Transmission Date: 20111222
  Serious: Yes (Other)
  Sender: FDA-Public Use
  Company Number: IT-ELI_LILLY_AND_COMPANY-IT201107004021

PATIENT
  Sex: Female

DRUGS (3)
  1. OLANZAPINE [Suspect]
     Indication: SCHIZOPHRENIA
     Dosage: 300 MG, CYCLE
     Route: 030
     Dates: start: 20110405, end: 20110630
  2. NEURONTIN [Concomitant]
     Dosage: 900 MG, UNKNOWN
     Route: 048
     Dates: start: 20110223, end: 20110630
  3. LORAZEPAM [Concomitant]
     Indication: ANXIETY
     Dosage: 6 MG, UNKNOWN
     Route: 048
     Dates: start: 20110223, end: 20110630

REACTIONS (2)
  - WEIGHT INCREASED [None]
  - DYSKINESIA [None]
